FAERS Safety Report 9818054 (Version 2)
Quarter: 2014Q1

REPORT INFORMATION
  Report Type: Spontaneous
  Country: US (occurrence: US)
  Receive Date: 20140115
  Receipt Date: 20140115
  Transmission Date: 20141002
  Serious: Yes (Hospitalization)
  Sender: FDA-Public Use
  Company Number: US-BEH-2012031165

PATIENT
  Age: 66 Year
  Sex: Female
  Weight: 52 kg

DRUGS (33)
  1. HIZENTRA [Suspect]
     Indication: IMMUNODEFICIENCY COMMON VARIABLE
     Dosage: 1 GM 5 ML; 35 ML IN 2 SITES FOR 1 HOUR
     Route: 058
     Dates: start: 20101221
  2. HIZENTRA [Suspect]
     Dosage: 2 GM 10 ML
     Route: 058
     Dates: start: 20101221
  3. HIZENTRA [Suspect]
     Dosage: 4 GM 20 ML
     Route: 058
     Dates: start: 20101221
  4. HIZENTRA [Suspect]
     Dosage: 1 GM 5 ML VIAL
     Route: 057
  5. HIZENTRA [Suspect]
     Dosage: 2 GM 10 ML VIAL
     Route: 058
  6. HIZENTRA [Suspect]
     Dosage: 4 GM 20 ML VIAL
     Route: 058
  7. LEFLUNOMIDE [Concomitant]
  8. PROGRAF [Concomitant]
  9. VITAMIN D3 [Concomitant]
  10. WELCHOL [Concomitant]
  11. LISINOPRIL [Concomitant]
  12. NIACIN [Concomitant]
  13. ZETIA [Concomitant]
  14. FISH OIL [Concomitant]
  15. COREG [Concomitant]
  16. ZOLOFT [Concomitant]
  17. NORVASC [Concomitant]
  18. ZEMPLAR [Concomitant]
  19. ZOFRAN [Concomitant]
  20. EPOGEN [Concomitant]
  21. CLONIDINE [Concomitant]
  22. NEFAZODONE [Concomitant]
  23. NEXIUM [Concomitant]
  24. CLONAZEPAM [Concomitant]
  25. ASPIRIN [Concomitant]
  26. TYLENOL ES [Concomitant]
  27. PROCHLORPERAZINE [Concomitant]
  28. COQ10 [Concomitant]
  29. LIVALO [Concomitant]
  30. LMX [Concomitant]
  31. EPIPEN [Concomitant]
  32. DIPHENHYDRAMINE [Concomitant]
  33. CRESTOR [Concomitant]

REACTIONS (6)
  - Influenza [Unknown]
  - Pyrexia [Unknown]
  - Pain [Unknown]
  - Loss of consciousness [Recovered/Resolved]
  - Aspiration [Unknown]
  - Herpes zoster [Unknown]
